FAERS Safety Report 18400522 (Version 1)
Quarter: 2020Q4

REPORT INFORMATION
  Report Type: Spontaneous
  Country: US (occurrence: US)
  Receive Date: 20201019
  Receipt Date: 20201019
  Transmission Date: 20210114
  Serious: Yes (Hospitalization, Other)
  Sender: FDA-Public Use
  Company Number: US-PFIZER INC-2020400564

PATIENT
  Age: 56 Year
  Sex: Male
  Weight: 70.76 kg

DRUGS (3)
  1. GABAPENTIN. [Suspect]
     Active Substance: GABAPENTIN
     Indication: PAIN
  2. GABAPENTIN. [Suspect]
     Active Substance: GABAPENTIN
     Indication: NECK SURGERY
     Dosage: 300 MG, 2X/DAY
     Route: 048
     Dates: start: 202009, end: 202010
  3. GABAPENTIN. [Suspect]
     Active Substance: GABAPENTIN
     Indication: NEURALGIA

REACTIONS (10)
  - Thinking abnormal [Unknown]
  - Insomnia [Unknown]
  - Speech disorder [Unknown]
  - Emotional disorder [Unknown]
  - Off label use [Unknown]
  - Dysphagia [Unknown]
  - Product use in unapproved indication [Unknown]
  - Weight decreased [Unknown]
  - Abnormal behaviour [Unknown]
  - Intentional dose omission [Unknown]

NARRATIVE: CASE EVENT DATE: 2020
